FAERS Safety Report 24986485 (Version 1)
Quarter: 2025Q1

REPORT INFORMATION
  Report Type: Spontaneous
  Country: CN (occurrence: CN)
  Receive Date: 20250219
  Receipt Date: 20250219
  Transmission Date: 20250409
  Serious: Yes (Hospitalization, Other)
  Sender: CHEPLAPHARM
  Company Number: CN-ROCHE-2480299

PATIENT
  Age: 66 Year
  Sex: Female

DRUGS (6)
  1. CAPECITABINE [Suspect]
     Active Substance: CAPECITABINE
     Indication: Colon cancer
     Route: 048
     Dates: start: 2018, end: 201810
  2. BEVACIZUMAB [Suspect]
     Active Substance: BEVACIZUMAB
     Indication: Colon cancer
     Route: 042
     Dates: start: 20190311
  3. OXALIPLATIN [Concomitant]
     Active Substance: OXALIPLATIN
  4. IRINOTECAN [Concomitant]
     Active Substance: IRINOTECAN
  5. RALTITREXED [Concomitant]
     Active Substance: RALTITREXED
  6. REGORAFENIB [Concomitant]
     Active Substance: REGORAFENIB

REACTIONS (4)
  - Autoimmune dermatitis [Recovering/Resolving]
  - Immune-mediated myocarditis [Unknown]
  - Immune-mediated hepatitis [Unknown]
  - Immune-mediated myasthenia gravis [Recovering/Resolving]

NARRATIVE: CASE EVENT DATE: 20190101
